FAERS Safety Report 8826511 (Version 1)
Quarter: 2012Q4

REPORT INFORMATION
  Report Type: 
  Country: AU (occurrence: AT)
  Receive Date: 20121005
  Receipt Date: 20121005
  Transmission Date: 20130627
  Serious: Yes (Death)
  Sender: FDA-Public Use
  Company Number: AU-CELGENEUS-009-21880-12100045

PATIENT

DRUGS (2)
  1. REVLIMID [Suspect]
     Indication: CLL
     Route: 048
     Dates: start: 20120522
  2. REVLIMID [Suspect]
     Route: 048
     Dates: start: 20120722

REACTIONS (1)
  - Death [Fatal]
